FAERS Safety Report 13970377 (Version 1)
Quarter: 2017Q3

REPORT INFORMATION
  Report Type: Report from Study
  Country: ZA (occurrence: ZA)
  Receive Date: 20170914
  Receipt Date: 20170914
  Transmission Date: 20171128
  Serious: Yes (Death)
  Sender: FDA-Public Use
  Company Number: PHHY2017ZA135797

PATIENT
  Age: 82 Year
  Sex: Female

DRUGS (1)
  1. CO-TAREG [Suspect]
     Active Substance: HYDROCHLOROTHIAZIDE\VALSARTAN
     Indication: HYPERTENSION
     Dosage: 1 DF (HYDROCHLOROTHIAZIDE 12.5 MG AND VALSARTAN 80 MG), UNK
     Route: 048

REACTIONS (2)
  - Death [Fatal]
  - Herpes zoster [Unknown]

NARRATIVE: CASE EVENT DATE: 20170623
